FAERS Safety Report 17413673 (Version 1)
Quarter: 2020Q1

REPORT INFORMATION
  Report Type: Spontaneous
  Country: IT (occurrence: IT)
  Receive Date: 20200213
  Receipt Date: 20200213
  Transmission Date: 20200409
  Serious: Yes (Hospitalization, Other)
  Sender: FDA-Public Use
  Company Number: NVSC2019IT057869

PATIENT
  Age: 81 Year
  Sex: Male

DRUGS (2)
  1. HYDROCHLOROTHIAZIDE. [Suspect]
     Active Substance: HYDROCHLOROTHIAZIDE
     Indication: HYPERTENSION
     Dosage: 12 MG
     Route: 065
  2. OLMESARTAN MEDOXOMIL. [Suspect]
     Active Substance: OLMESARTAN MEDOXOMIL
     Indication: HYPERTENSION
     Dosage: 20 MG, QD
     Route: 065

REACTIONS (17)
  - Sprue-like enteropathy [Recovered/Resolved]
  - Asthenia [Unknown]
  - Hypoalbuminaemia [Unknown]
  - Hypokalaemia [Unknown]
  - Intestinal intraepithelial lymphocytes increased [Unknown]
  - Atrophy [Unknown]
  - Blood folate decreased [Unknown]
  - Hypernatraemia [Unknown]
  - Oedema peripheral [Unknown]
  - Anaemia [Unknown]
  - Vitamin B12 decreased [Unknown]
  - Pleural effusion [Unknown]
  - Gastrointestinal disorder [Unknown]
  - Therapy partial responder [Unknown]
  - Ascites [Unknown]
  - Diarrhoea [Unknown]
  - C-reactive protein increased [Unknown]
